FAERS Safety Report 6409441-4 (Version None)
Quarter: 2009Q4

REPORT INFORMATION
  Report Type: 
  Country: None (occurrence: None)
  Receive Date: 20091019
  Receipt Date: 20091019
  Transmission Date: 20100525
  Serious: Yes (Life-Threatening, Hospitalization)
  Sender: FDA-Public Use
  Company Number: None

PATIENT
  Age: 43 Year
  Sex: Female
  Weight: 96.1626 kg

DRUGS (2)
  1. ORTHO TRI-CYCLEN LO [Suspect]
     Indication: MENSTRUAL CYCLE MANAGEMENT
     Dosage: 1 PILL DAILY
     Dates: start: 20080601, end: 20091006
  2. ORTHO TRI-CYCLEN LO [Suspect]
     Indication: MOOD SWINGS
     Dosage: 1 PILL DAILY
     Dates: start: 20080601, end: 20091006

REACTIONS (1)
  - DEEP VEIN THROMBOSIS [None]
